FAERS Safety Report 18149638 (Version 1)
Quarter: 2020Q3

REPORT INFORMATION
  Report Type: Spontaneous
  Country: US (occurrence: US)
  Receive Date: 20200813
  Receipt Date: 20200813
  Transmission Date: 20201103
  Serious: Yes (Disabling, Other)
  Sender: FDA-Public Use
  Company Number: None

PATIENT
  Age: 53 Year
  Sex: Female
  Weight: 92.7 kg

DRUGS (2)
  1. PHENOBARBITAL. [Suspect]
     Active Substance: PHENOBARBITAL
     Indication: TREMOR
     Dosage: ?          QUANTITY:1 TABLET(S);?
     Route: 048
     Dates: start: 20200723, end: 20200731
  2. MS IR PHENERGAN [Concomitant]

REACTIONS (5)
  - Pruritus [None]
  - Scratch [None]
  - Urticaria [None]
  - Skin disorder [None]
  - Scar [None]

NARRATIVE: CASE EVENT DATE: 20200730
